FAERS Safety Report 8603025-5 (Version None)
Quarter: 2012Q3

REPORT INFORMATION
  Report Type: 
  Country: None (occurrence: None)
  Receive Date: 20120817
  Receipt Date: 20120608
  Transmission Date: 20120928
  Serious: No
  Sender: FDA-Public Use
  Company Number: US-GLAXOSMITHKLINE-A0980624A

PATIENT
  Age: 54 Year
  Sex: Female

DRUGS (5)
  1. LORATADINE [Concomitant]
  2. SYNTHROID [Concomitant]
  3. PROCHLORPERAZINE [Concomitant]
  4. VOTRIENT [Suspect]
     Indication: RENAL CANCER
     Dosage: 800MG PER DAY
     Route: 048
     Dates: start: 20120508
  5. ESTRADIOL [Concomitant]

REACTIONS (1)
  - NAUSEA [None]
